FAERS Safety Report 7223293-4 (Version None)
Quarter: 2011Q1

REPORT INFORMATION
  Report Type: 
  Country: None (occurrence: None)
  Receive Date: 20110112
  Receipt Date: 20100419
  Transmission Date: 20110831
  Serious: No
  Sender: FDA-Public Use
  Company Number: US-ALLERGAN-1005069US

PATIENT
  Sex: Female

DRUGS (5)
  1. BENICAR [Concomitant]
     Indication: BLOOD CHOLESTEROL INCREASED
  2. CRESTOR [Concomitant]
     Indication: BLOOD CHOLESTEROL INCREASED
  3. MULTI-VITAMIN [Suspect]
  4. RESTASIS [Suspect]
     Indication: DRY EYE
     Dosage: USED 3 TIMES ONLY
  5. GLUCOSE [Concomitant]

REACTIONS (1)
  - SINUSITIS [None]
